FAERS Safety Report 18332453 (Version 1)
Quarter: 2020Q3

REPORT INFORMATION
  Report Type: Spontaneous
  Country: US (occurrence: US)
  Receive Date: 20200930
  Receipt Date: 20200930
  Transmission Date: 20201103
  Serious: No
  Sender: FDA-Public Use
  Company Number: US-DSJP-DSU-2020-128144

PATIENT
  Age: 61 Year
  Sex: Female

DRUGS (5)
  1. ESTRADIOL. [Concomitant]
     Active Substance: ESTRADIOL
     Indication: BLOOD OESTROGEN DECREASED
     Dosage: UNK
     Route: 048
  2. METFORMIN [Concomitant]
     Active Substance: METFORMIN HYDROCHLORIDE
     Indication: DIABETES MELLITUS
     Dosage: UNK
     Route: 048
  3. LISINOPRI EG [Concomitant]
     Indication: HYPERTENSION
     Dosage: 40 MG
     Route: 048
  4. WELCHOL [Suspect]
     Active Substance: COLESEVELAM HYDROCHLORIDE
     Indication: DIABETES MELLITUS
     Dosage: 625 MG ONE TABLET A DAY/ORAL
     Route: 048
     Dates: start: 202009, end: 202009
  5. WELCHOL [Suspect]
     Active Substance: COLESEVELAM HYDROCHLORIDE
     Indication: DIABETES MELLITUS
     Dosage: 3.75 G, ONE PACKET A DAY/ORAL
     Route: 048
     Dates: start: 202009, end: 202009

REACTIONS (3)
  - Off label use [Recovered/Resolved]
  - Anxiety [Unknown]
  - Nausea [Unknown]

NARRATIVE: CASE EVENT DATE: 202009
